FAERS Safety Report 23127695 (Version 1)
Quarter: 2023Q4

REPORT INFORMATION
  Report Type: Spontaneous
  Country: DK (occurrence: DK)
  Receive Date: 20231031
  Receipt Date: 20231031
  Transmission Date: 20240109
  Serious: Yes (Other)
  Sender: FDA-Public Use
  Company Number: DK-EMA-DD-20210108-kumarsingh_a-094513

PATIENT
  Age: 25 Year
  Sex: Male

DRUGS (15)
  1. ADALIMUMAB [Suspect]
     Active Substance: ADALIMUMAB\ISOPROPYL ALCOHOL
     Indication: Hidradenitis
     Dosage: UNKNOWN
     Route: 065
  2. AZATHIOPRINE [Suspect]
     Active Substance: AZATHIOPRINE
     Indication: Hidradenitis
     Dosage: UNKNOWN
     Route: 065
  3. CIPROFLOXACIN [Suspect]
     Active Substance: CIPROFLOXACIN
     Indication: Hidradenitis
     Dosage: UNKNOWN
     Route: 065
  4. CLINDAMYCIN [Suspect]
     Active Substance: CLINDAMYCIN
     Indication: Hidradenitis
     Dosage: UNKNOWN
     Route: 065
  5. DOXYCYCLINE [Suspect]
     Active Substance: DOXYCYCLINE
     Indication: Hidradenitis
     Dosage: UNKNOWN
     Route: 065
  6. DICLOXACILLIN [Suspect]
     Active Substance: DICLOXACILLIN
     Indication: Hidradenitis
     Dosage: UNK
     Route: 065
  7. GUSELKUMAB [Suspect]
     Active Substance: GUSELKUMAB
     Dosage: 100 MG
     Route: 058
  8. GUSELKUMAB [Suspect]
     Active Substance: GUSELKUMAB
     Dosage: 100 MG (100 MILLIGRAM AT WEEK ZERO)
     Route: 058
     Dates: start: 201904
  9. GUSELKUMAB [Suspect]
     Active Substance: GUSELKUMAB
     Indication: Product used for unknown indication
     Dosage: 100 MG (100 MILLIGRAM AT WEEK FOUR)
     Route: 058
  10. GUSELKUMAB [Suspect]
     Active Substance: GUSELKUMAB
     Dosage: 100 MG (MAINTENANCE DOSE)
     Route: 058
  11. METRONIDAZOLE [Suspect]
     Active Substance: METRONIDAZOLE
     Indication: Product used for unknown indication
     Dosage: UNKNOWN
     Route: 065
  12. PENICILLIN [Suspect]
     Active Substance: PENICILLIN
     Indication: Hidradenitis
     Dosage: UNK
     Route: 065
  13. RIFAMPIN [Suspect]
     Active Substance: RIFAMPIN
     Indication: Hidradenitis
     Dosage: UNKNOWN
     Route: 065
  14. TETRACYCLINE [Suspect]
     Active Substance: TETRACYCLINE
     Indication: Hidradenitis
     Dosage: UNKNOWN
     Route: 065
  15. USTEKINUMAB [Suspect]
     Active Substance: USTEKINUMAB
     Indication: Product used for unknown indication
     Dosage: UNK
     Route: 065

REACTIONS (4)
  - Hidradenitis [Recovering/Resolving]
  - Abdominal pain [Unknown]
  - Drug ineffective [Unknown]
  - Pyrexia [Unknown]
